APPROVED DRUG PRODUCT: VANFLYTA
Active Ingredient: QUIZARTINIB DIHYDROCHLORIDE
Strength: EQ 26.5MG BASE
Dosage Form/Route: TABLET;ORAL
Application: N216993 | Product #002
Applicant: DAIICHI SANKYO INC
Approved: Jul 20, 2023 | RLD: Yes | RS: Yes | Type: RX

PATENTS:
Patent 9585892 | Expires: Mar 16, 2027
Patent 9555040 | Expires: May 14, 2030
Patent 8836218 | Expires: Mar 23, 2030
Patent 8357690 | Expires: Feb 26, 2031
Patent 8129374 | Expires: Mar 16, 2027
Patent 7968543 | Expires: Aug 15, 2029
Patent 8865710 | Expires: Aug 15, 2029
Patent 9675549 | Expires: Sep 30, 2033
Patent 7820657 | Expires: Sep 26, 2028
Patent 8883783 | Expires: Mar 16, 2027
Patent 8557810 | Expires: Mar 16, 2027

EXCLUSIVITY:
Code: NCE | Date: Jul 20, 2028
Code: ODE-437 | Date: Jul 20, 2030